FAERS Safety Report 4870146-2 (Version None)
Quarter: 2005Q4

REPORT INFORMATION
  Report Type: 
  Country: None (occurrence: None)
  Receive Date: 20051228
  Receipt Date: 20051209
  Transmission Date: 20060501
  Serious: Yes (Other)
  Sender: FDA-Public Use
  Company Number: 2005171167

PATIENT
  Age: 11 Year
  Sex: Male

DRUGS (3)
  1. ZITHROMAX [Suspect]
     Indication: BRONCHITIS
     Dosage: 375 MG, ORAL
     Route: 048
     Dates: start: 20051020, end: 20051022
  2. MUCOSOLVAN (AMBROXOL HYDROCHLORIDE) [Concomitant]
  3. CLARITIN [Concomitant]

REACTIONS (1)
  - INTRACRANIAL HAEMATOMA [None]
